FAERS Safety Report 21888384 (Version 1)
Quarter: 2023Q1

REPORT INFORMATION
  Report Type: Report from Study
  Country: US (occurrence: US)
  Receive Date: 20230120
  Receipt Date: 20230120
  Transmission Date: 20230417
  Serious: No
  Sender: FDA-Public Use
  Company Number: US-ABBVIE-4246204

PATIENT
  Sex: Female

DRUGS (1)
  1. HUMIRA [Suspect]
     Active Substance: ADALIMUMAB
     Indication: Rheumatoid arthritis
     Dosage: CITRATE FREE, DISCONTINUED IN 2022, ONSET FOR SICK WITH INFECTION WAS 2022 AND RECOVERED IN 2022.
     Route: 058
     Dates: start: 20220415

REACTIONS (1)
  - Infection [Recovered/Resolved]
